FAERS Safety Report 23053520 (Version 2)
Quarter: 2023Q4

REPORT INFORMATION
  Report Type: Spontaneous
  Country: US (occurrence: US)
  Receive Date: 20231011
  Receipt Date: 20231106
  Transmission Date: 20240109
  Serious: Yes (Hospitalization, Other)
  Sender: FDA-Public Use
  Company Number: US-BRISTOL-MYERS SQUIBB COMPANY-2023-144174

PATIENT
  Age: 47 Year
  Sex: Female
  Weight: 88.0 kg

DRUGS (1)
  1. REVLIMID [Suspect]
     Active Substance: LENALIDOMIDE
     Indication: Adult T-cell lymphoma/leukaemia
     Dosage: ONCE DAILY
     Route: 048

REACTIONS (3)
  - Hypercalcaemia [Unknown]
  - Malignant neoplasm progression [Unknown]
  - Off label use [Unknown]
